FAERS Safety Report 9643576 (Version 2)
Quarter: 2013Q4

REPORT INFORMATION
  Report Type: Spontaneous
  Country: CA (occurrence: CA)
  Receive Date: 20131024
  Receipt Date: 20131203
  Transmission Date: 20140711
  Serious: Yes (Other)
  Sender: FDA-Public Use
  Company Number: CA-GLAXOSMITHKLINE-A1044420A

PATIENT
  Sex: Female

DRUGS (3)
  1. TAFINLAR [Suspect]
     Indication: METASTATIC MALIGNANT MELANOMA
     Dosage: 150MG PER DAY
     Route: 065
  2. ANTI-PSYCHOTIC MEDICATION [Concomitant]
  3. VALPROIC ACID [Concomitant]

REACTIONS (7)
  - Terminal state [Unknown]
  - Rash pruritic [Unknown]
  - Rash macular [Unknown]
  - Rash [Unknown]
  - Blister [Unknown]
  - Urticaria [Unknown]
  - Simple partial seizures [Unknown]
